FAERS Safety Report 9976705 (Version 2)
Quarter: 2014Q1

REPORT INFORMATION
  Report Type: Report from Study
  Country: US (occurrence: US)
  Receive Date: 20140306
  Receipt Date: 20140306
  Transmission Date: 20141002
  Serious: Yes (Other)
  Sender: FDA-Public Use
  Company Number: US-ABBVIE-13P-163-1166106-00

PATIENT
  Sex: Male
  Weight: 72.64 kg

DRUGS (8)
  1. HUMIRA [Suspect]
     Indication: RHEUMATOID ARTHRITIS
     Dates: start: 2007, end: 2011
  2. HUMIRA [Suspect]
     Dates: start: 2011, end: 201309
  3. HUMIRA [Suspect]
     Dates: start: 201310
  4. UNKNOWN BLOOD PRESSURE PILL [Concomitant]
     Indication: HYPERTENSION
  5. UNKNOWN THYROID PILL [Concomitant]
     Indication: HYPOTHYROIDISM
  6. AXIRON [Concomitant]
     Indication: BLOOD TESTOSTERONE DECREASED
  7. ALLEGRA [Concomitant]
     Indication: SEASONAL ALLERGY
  8. METHOTREXATE [Concomitant]
     Indication: PRODUCT USED FOR UNKNOWN INDICATION

REACTIONS (4)
  - Tooth abscess [Recovered/Resolved]
  - Herpes zoster [Recovered/Resolved]
  - Vomiting [Recovered/Resolved]
  - Influenza [Recovered/Resolved]
